FAERS Safety Report 25071056 (Version 1)
Quarter: 2025Q1

REPORT INFORMATION
  Report Type: Report from Study
  Country: US (occurrence: US)
  Receive Date: 20250312
  Receipt Date: 20250312
  Transmission Date: 20250409
  Serious: Yes (Other)
  Sender: GILEAD
  Company Number: US-GILEAD-2025-0704513

PATIENT
  Age: 71 Year
  Sex: Female

DRUGS (15)
  1. SELADELPAR [Suspect]
     Active Substance: SELADELPAR
     Indication: Primary biliary cholangitis
     Dosage: 10 MG, QD
     Route: 048
     Dates: start: 20241125
  2. PHENOBARBITAL [Concomitant]
     Active Substance: PHENOBARBITAL
  3. ACETAMINOPHEN [Concomitant]
     Active Substance: ACETAMINOPHEN
  4. AMLODIPINE [Concomitant]
     Active Substance: AMLODIPINE BESYLATE
  5. CETIRIZINE HYDROCHLORIDE [Concomitant]
     Active Substance: CETIRIZINE HYDROCHLORIDE
  6. CALCIUM [Concomitant]
     Active Substance: CALCIUM
  7. VITAMIN D NOS [Concomitant]
     Active Substance: CHOLECALCIFEROL\ERGOCALCIFEROL
  8. FENOFIBRATE [Concomitant]
     Active Substance: FENOFIBRATE
  9. LORAZEPAM [Concomitant]
     Active Substance: LORAZEPAM
  10. MELOXICAM [Concomitant]
     Active Substance: MELOXICAM
  11. NASACORT [Concomitant]
     Active Substance: TRIAMCINOLONE ACETONIDE
  12. OCALIVA [Concomitant]
     Active Substance: OBETICHOLIC ACID
  13. OMEPRAZOLE [Concomitant]
     Active Substance: OMEPRAZOLE
  14. REFRESH TEARS [Concomitant]
     Active Substance: CARBOXYMETHYLCELLULOSE SODIUM
  15. URSODIOL [Concomitant]
     Active Substance: URSODIOL

REACTIONS (6)
  - Hepatic cirrhosis [Unknown]
  - Fatigue [Not Recovered/Not Resolved]
  - Dizziness [Not Recovered/Not Resolved]
  - Flatulence [Not Recovered/Not Resolved]
  - Pruritus [Unknown]
  - Diarrhoea [Unknown]
